FAERS Safety Report 9138262 (Version 3)
Quarter: 2013Q2

REPORT INFORMATION
  Report Type: Spontaneous
  Country: GB (occurrence: GB)
  Receive Date: 20130305
  Receipt Date: 20130423
  Transmission Date: 20140414
  Serious: Yes (Other)
  Sender: FDA-Public Use
  Company Number: GB-009507513-1302GBR010283

PATIENT
  Age: 71 Year
  Sex: Male

DRUGS (1)
  1. ZISPIN SOLTAB [Suspect]
     Route: 048

REACTIONS (22)
  - Hypoacusis [Not Recovered/Not Resolved]
  - Oropharyngeal pain [Not Recovered/Not Resolved]
  - Memory impairment [Not Recovered/Not Resolved]
  - Confusional state [Not Recovered/Not Resolved]
  - Dry mouth [Not Recovered/Not Resolved]
  - Somnolence [Not Recovered/Not Resolved]
  - Dizziness [Not Recovered/Not Resolved]
  - Nightmare [Not Recovered/Not Resolved]
  - Headache [Not Recovered/Not Resolved]
  - Depression [Not Recovered/Not Resolved]
  - Dyspnoea [Not Recovered/Not Resolved]
  - Cardiac disorder [Not Recovered/Not Resolved]
  - Pupillary disorder [Not Recovered/Not Resolved]
  - Anticholinergic syndrome [Unknown]
  - Pruritus [Unknown]
  - Pain [Unknown]
  - Mental disorder [Unknown]
  - Agitation [Unknown]
  - Euphoric mood [Unknown]
  - Nausea [Unknown]
  - Malaise [Unknown]
  - Panic attack [Unknown]
